FAERS Safety Report 6495626-8 (Version None)
Quarter: 2009Q4

REPORT INFORMATION
  Report Type: 
  Country: None (occurrence: None)
  Receive Date: 20091214
  Receipt Date: 20090724
  Transmission Date: 20100525
  Serious: No
  Sender: FDA-Public Use
  Company Number: US-BRISTOL-MYERS SQUIBB COMPANY-14715452

PATIENT
  Age: 62 Year
  Sex: Female

DRUGS (2)
  1. ABILIFY [Suspect]
     Indication: BIPOLAR DISORDER
     Dosage: DOSAGE STARTED AT 2MG WITH INCREASE TO 8MG AND THEN A DECREASE TO 5MG
     Dates: start: 20090401
  2. LITHIUM [Concomitant]

REACTIONS (1)
  - TARDIVE DYSKINESIA [None]
